FAERS Safety Report 21846794 (Version 2)
Quarter: 2023Q1

REPORT INFORMATION
  Report Type: Spontaneous
  Country: US (occurrence: US)
  Receive Date: 20230111
  Receipt Date: 20230330
  Transmission Date: 20230417
  Serious: Yes (Hospitalization, Other)
  Sender: FDA-Public Use
  Company Number: US-BRISTOL-MYERS SQUIBB COMPANY-2023-004084

PATIENT
  Age: 87 Year
  Sex: Female
  Weight: 66.86 kg

DRUGS (18)
  1. REVLIMID [Suspect]
     Active Substance: LENALIDOMIDE
     Indication: Plasma cell myeloma
     Dosage: FREQ: DAILY FOR 7 DAYS ON AND 7 DAYS OFF?DAYS 1-21 OF 28 DAYS CYCLE
     Route: 048
     Dates: start: 202211
  2. DEXAMETHASONE [Suspect]
     Active Substance: DEXAMETHASONE
     Indication: Plasma cell myeloma
     Dosage: 4 MG TABLET 16 MG ORALLY AS DIRECTED, TAKE 4 TABLETS WITH FOOD ON DAYS 1,8,15, 22OF EACH CYCLE. TOTA
     Route: 048
  3. STOOL SOFTENER (DOCUSATE) [Concomitant]
     Active Substance: DOCUSATE
     Indication: Product used for unknown indication
  4. POLYETHYLENE GLYCOL, UNSPECIFIED [Concomitant]
     Active Substance: POLYETHYLENE GLYCOL, UNSPECIFIED
     Indication: Product used for unknown indication
     Route: 048
  5. NITROFURANTOIN [Concomitant]
     Active Substance: NITROFURANTOIN
     Indication: Product used for unknown indication
     Dosage: 12 HR MACRO CRYSTAL FORM, 100 MG CAPSULE 1 CAPSULE ORALLY 2 TIMES PER DAY. MUST ADMINISTER WITH A ME
     Route: 048
  6. PROTONIX [Concomitant]
     Active Substance: PANTOPRAZOLE SODIUM
     Indication: Product used for unknown indication
     Dosage: 40 MG TABLET, DELAYED RELEASE (DR/EC) 1 TABLET, DELAYED RELEASE (DR/ EC) ORALLY DAILY
     Route: 048
  7. GABAPENTIN [Concomitant]
     Active Substance: GABAPENTIN
     Indication: Product used for unknown indication
     Route: 048
  8. POTASSIUM CHLORIDE [Concomitant]
     Active Substance: POTASSIUM CHLORIDE
     Indication: Product used for unknown indication
     Dosage: ORAL ER TAB 20 MEG
     Route: 048
  9. APIXABAN [Concomitant]
     Active Substance: APIXABAN
     Indication: Product used for unknown indication
     Dosage: ORAL 2.5 MG TABLET 1 TABLETS, DOSE PACK ORALLY 2 TIMES PER DAY
     Route: 048
  10. ACETAMINOPHEN\HYDROCODONE [Concomitant]
     Active Substance: ACETAMINOPHEN\HYDROCODONE
     Indication: Pain
     Dosage: ORAL 7.5 MG-325 MG 7.5-325 MG TABLET I TAB ORALLY EVERY 4 HOURS AS NEEDED FOR PAIN
     Route: 048
  11. ACETAMINOPHEN [Concomitant]
     Active Substance: ACETAMINOPHEN
     Indication: Product used for unknown indication
     Dosage: ORAL 500 MG TWICE A DAY
     Route: 048
  12. FUROSEMIDE [Concomitant]
     Active Substance: FUROSEMIDE
     Indication: Product used for unknown indication
     Route: 048
  13. LISINOPRIL [Concomitant]
     Active Substance: LISINOPRIL
     Indication: Product used for unknown indication
     Dosage: ORAL 40 MG ONE A DAY
     Route: 048
  14. ASPIRIN [Concomitant]
     Active Substance: ASPIRIN
     Indication: Product used for unknown indication
     Route: 048
  15. METOPROLOL SUCCINATE [Concomitant]
     Active Substance: METOPROLOL SUCCINATE
     Indication: Product used for unknown indication
     Dosage: ORAL 24 HR TAB (SUCCINATE) 50 MG ONE DAILY
     Route: 048
  16. CARAFATE [Concomitant]
     Active Substance: SUCRALFATE
     Indication: Product used for unknown indication
     Dosage: 1 GRAM TABLET 1 TABLET ORALLY BEFORE MEALS AND AT BEDTIME
     Route: 048
  17. NINLARO [Concomitant]
     Active Substance: IXAZOMIB CITRATE
     Indication: Product used for unknown indication
     Dosage: (IXAZOMIB ORAL DOSE PACK 4 MG) 4 MG CAPSULE I CAPSULE ORALLY AS DIRECTED ON DOSE PACK. TAKE I CAPSUL
     Route: 048
  18. ACYCLOVIR [Concomitant]
     Active Substance: ACYCLOVIR
     Indication: Product used for unknown indication

REACTIONS (3)
  - Dyspnoea [Unknown]
  - Off label use [Unknown]
  - Aortic stenosis [Unknown]
